FAERS Safety Report 18035588 (Version 1)
Quarter: 2020Q3

REPORT INFORMATION
  Report Type: Spontaneous
  Country: US (occurrence: US)
  Receive Date: 20200717
  Receipt Date: 20200717
  Transmission Date: 20201103
  Serious: Yes (Other)
  Sender: FDA-Public Use
  Company Number: US-009507513-2007USA005808

PATIENT
  Sex: Male
  Weight: 4.08 kg

DRUGS (2)
  1. NEXPLANON [Suspect]
     Active Substance: ETONOGESTREL
     Dosage: 1 ROD/IMPLANT EVERY 3 YEARS
     Route: 064
     Dates: start: 20170411, end: 20191105
  2. ZOLOFT [Concomitant]
     Active Substance: SERTRALINE HYDROCHLORIDE
     Dosage: 100 MILLIGRAM, QD
     Route: 064

REACTIONS (2)
  - Shoulder dystocia [Recovered/Resolved]
  - Foetal exposure during pregnancy [Recovered/Resolved]
